FAERS Safety Report 25215596 (Version 2)
Quarter: 2025Q3

REPORT INFORMATION
  Report Type: Spontaneous
  Country: US (occurrence: US)
  Receive Date: 20250418
  Receipt Date: 20250721
  Transmission Date: 20251021
  Serious: No
  Sender: Phathom Pharmaceuticals
  Company Number: US-PHATHOM PHARMACEUTICALS INC.-2025PHT00452

PATIENT
  Age: 69 Year
  Sex: Female
  Weight: 77.551 kg

DRUGS (8)
  1. VOQUEZNA TRIPLE PAK [Suspect]
     Active Substance: AMOXICILLIN\CLARITHROMYCIN\VONOPRAZAN FUMARATE
     Indication: Helicobacter infection
     Dosage: 20/500/500 MG, 2X/DAY
     Route: 048
     Dates: start: 20241220
  2. VOQUEZNA [Suspect]
     Active Substance: VONOPRAZAN FUMARATE
     Dosage: 20 MG, 1X/DAY
     Route: 048
     Dates: start: 20250515, end: 20250529
  3. PROMETHAZINE [Concomitant]
     Active Substance: PROMETHAZINE HYDROCHLORIDE
  4. RIZATRIPTAN [Concomitant]
     Active Substance: RIZATRIPTAN
  5. ZOLPIDEM [Concomitant]
     Active Substance: ZOLPIDEM TARTRATE
  6. TIZANIDINE [Concomitant]
     Active Substance: TIZANIDINE
  7. CLONAZEPAM [Concomitant]
     Active Substance: CLONAZEPAM
  8. TYLENOL WITH CODEINE [Concomitant]
     Active Substance: ACETAMINOPHEN\CODEINE PHOSPHATE

REACTIONS (15)
  - Tremor [Recovered/Resolved]
  - Cold sweat [Recovered/Resolved]
  - Hypophagia [Unknown]
  - Sneezing [Unknown]
  - Chills [Unknown]
  - Weight decreased [Unknown]
  - Drug hypersensitivity [Recovered/Resolved]
  - Cough [Unknown]
  - Oropharyngeal pain [Unknown]
  - Gastrooesophageal reflux disease [Unknown]
  - Blood pressure increased [Unknown]
  - Headache [Recovered/Resolved]
  - Abdominal discomfort [Recovered/Resolved]
  - Diarrhoea [Unknown]
  - Nausea [Recovered/Resolved]

NARRATIVE: CASE EVENT DATE: 20241201
